FAERS Safety Report 7508089-8 (Version None)
Quarter: 2011Q2

REPORT INFORMATION
  Report Type: 
  Country: None (occurrence: None)
  Receive Date: 20110527
  Receipt Date: 20101217
  Transmission Date: 20111010
  Serious: Yes (Other)
  Sender: FDA-Public Use
  Company Number: US-BAYER-201012518NA

PATIENT
  Age: 42 Year
  Sex: Female
  Weight: 73.016 kg

DRUGS (16)
  1. YAZ [Suspect]
     Indication: PRODUCT USED FOR UNKNOWN INDICATION
     Dosage: UNK
     Dates: start: 20061206, end: 20070215
  2. NAPROSYN [Concomitant]
     Indication: RHEUMATOID ARTHRITIS
     Dosage: UNK
     Dates: start: 20070101
  3. VITAMIN D [Concomitant]
  4. VICODIN [Concomitant]
  5. IMITREX [Concomitant]
     Indication: MIGRAINE
  6. METHOTREXATE [Concomitant]
  7. VITAMINS WITH MINERALS [Concomitant]
  8. AMITRIPTYLINE HCL [Concomitant]
  9. TESTOSTERONE [Concomitant]
     Dosage: UNK UNK, QD
     Route: 061
  10. OPANA [Concomitant]
     Dosage: 10 MG, UNK
  11. NEURONTIN [Concomitant]
     Dosage: 300 MG, UNK
  12. PLAQUENIL [Concomitant]
  13. CLONAZEPAM [Concomitant]
  14. PREDNISONE [Concomitant]
     Indication: ARTHRITIS
     Dosage: 10 MG, UNK
  15. CYMBALTA [Concomitant]
     Dosage: 60 MG, UNK
  16. ASPIRIN [Concomitant]

REACTIONS (3)
  - HYPOAESTHESIA [None]
  - DEEP VEIN THROMBOSIS [None]
  - ARTHRALGIA [None]
